FAERS Safety Report 23913019 (Version 1)
Quarter: 2024Q2

REPORT INFORMATION
  Report Type: Spontaneous
  Country: BR (occurrence: BR)
  Receive Date: 20240529
  Receipt Date: 20240529
  Transmission Date: 20240716
  Serious: Yes (Disabling)
  Sender: FDA-Public Use
  Company Number: BR-CHEPLA-2024006682

PATIENT
  Age: 85 Year
  Sex: Male

DRUGS (9)
  1. CLONAZEPAM [Suspect]
     Active Substance: CLONAZEPAM
     Indication: Sleep disorder
     Dosage: EVERY NIGHT
     Route: 048
     Dates: start: 20240516
  2. OLANZAPINE [Concomitant]
     Active Substance: OLANZAPINE
     Indication: Cerebrovascular accident
     Dosage: IN THE MORNING
     Route: 048
  3. OLANZAPINE [Concomitant]
     Active Substance: OLANZAPINE
     Indication: Sleep disorder
     Dosage: IN THE MORNING
     Route: 048
  4. MEMANTINE [Concomitant]
     Active Substance: MEMANTINE
     Indication: Cerebrovascular accident
     Dosage: DAILY
     Route: 048
  5. DONEPEZIL [Concomitant]
     Active Substance: DONEPEZIL\DONEPEZIL HYDROCHLORIDE
     Indication: Cerebrovascular accident
     Dosage: DAILY
     Route: 048
  6. INDAPAMIDE [Concomitant]
     Active Substance: INDAPAMIDE
     Indication: Cerebrovascular accident
     Dosage: DAILY
     Route: 048
  7. HYDRALAZINE [Concomitant]
     Active Substance: HYDRALAZINE HYDROCHLORIDE
     Indication: Hypertension
     Dosage: TWICE A DAY
     Route: 048
  8. OLMESARTAN [Concomitant]
     Active Substance: OLMESARTAN
     Indication: Hypertension
     Dosage: DAILY
     Route: 048
  9. CLOPIDOGREL BISULFATE [Concomitant]
     Active Substance: CLOPIDOGREL BISULFATE
     Indication: Cerebrovascular accident
     Dosage: DAILY
     Route: 048

REACTIONS (7)
  - Walking disability [Not Recovered/Not Resolved]
  - Off label use [Not Recovered/Not Resolved]
  - Lethargy [Not Recovered/Not Resolved]
  - Somnolence [Not Recovered/Not Resolved]
  - Decreased appetite [Not Recovered/Not Resolved]
  - Depression [Not Recovered/Not Resolved]
  - Asthenia [Not Recovered/Not Resolved]

NARRATIVE: CASE EVENT DATE: 20240516
